FAERS Safety Report 11759316 (Version 1)
Quarter: 2015Q4

REPORT INFORMATION
  Report Type: Spontaneous
  Country: US (occurrence: None)
  Receive Date: 20151119
  Receipt Date: 20151119
  Transmission Date: 20160304
  Serious: No
  Sender: FDA-Public Use
  Company Number: None

PATIENT
  Age: 39 Year
  Sex: Female
  Weight: 52.16 kg

DRUGS (11)
  1. FLONASE [Concomitant]
     Active Substance: FLUTICASONE PROPIONATE
  2. NIACIN. [Concomitant]
     Active Substance: NIACIN
  3. VITAMIN D [Concomitant]
     Active Substance: CHOLECALCIFEROL
  4. VITAL D [Concomitant]
  5. BRINTELLIX [Suspect]
     Active Substance: VORTIOXETINE HYDROBROMIDE
     Indication: DEPRESSION
     Route: 048
  6. ALLEGRA [Concomitant]
     Active Substance: FEXOFENADINE HYDROCHLORIDE
  7. VYVANSE [Concomitant]
     Active Substance: LISDEXAMFETAMINE DIMESYLATE
  8. ALBUTEROL. [Concomitant]
     Active Substance: ALBUTEROL
  9. SYNTHROID [Concomitant]
     Active Substance: LEVOTHYROXINE SODIUM
  10. MULTIVITAMIN [Concomitant]
     Active Substance: VITAMINS
  11. WELLBUTRIN [Concomitant]
     Active Substance: BUPROPION HYDROCHLORIDE

REACTIONS (4)
  - Libido decreased [None]
  - Anorgasmia [None]
  - Decreased interest [None]
  - Drug effect decreased [None]
